FAERS Safety Report 11209422 (Version 7)
Quarter: 2016Q2

REPORT INFORMATION
  Report Type: Report from Study
  Country: CA (occurrence: CA)
  Receive Date: 20150622
  Receipt Date: 20160518
  Transmission Date: 20160815
  Serious: Yes (Hospitalization, Other)
  Sender: FDA-Public Use
  Company Number: PHHY2015CA072696

PATIENT
  Age: 64 Year
  Sex: Female

DRUGS (7)
  1. TASIGNA [Suspect]
     Active Substance: NILOTINIB
     Dosage: 450 MG, QD (BED TIME)
     Route: 048
  2. TASIGNA [Suspect]
     Active Substance: NILOTINIB
     Indication: CHRONIC MYELOID LEUKAEMIA
     Dosage: 300 MG, BID
     Route: 048
     Dates: start: 20150601
  3. COVERSYL [Concomitant]
     Active Substance: PERINDOPRIL
     Indication: PRODUCT USED FOR UNKNOWN INDICATION
     Route: 065
  4. TASIGNA [Suspect]
     Active Substance: NILOTINIB
     Dosage: 300 MG, QD
  5. HYDREA [Suspect]
     Active Substance: HYDROXYUREA
     Indication: WHITE BLOOD CELL COUNT INCREASED
     Route: 065
  6. SYNTHROID [Concomitant]
     Active Substance: LEVOTHYROXINE SODIUM
     Indication: PRODUCT USED FOR UNKNOWN INDICATION
     Route: 065
  7. ROSUVASTATIN. [Concomitant]
     Active Substance: ROSUVASTATIN
     Indication: PRODUCT USED FOR UNKNOWN INDICATION
     Route: 065

REACTIONS (14)
  - Abdominal pain upper [Unknown]
  - Hair texture abnormal [Unknown]
  - Cardiac disorder [Unknown]
  - Diarrhoea [Unknown]
  - Diverticulitis [Recovered/Resolved]
  - Rhinorrhoea [Unknown]
  - Eye disorder [Unknown]
  - Palpitations [Unknown]
  - Vision blurred [Unknown]
  - Heart rate increased [Unknown]
  - Fatigue [Unknown]
  - Alopecia [Not Recovered/Not Resolved]
  - Breast mass [Recovering/Resolving]
  - White blood cell count increased [Recovering/Resolving]

NARRATIVE: CASE EVENT DATE: 201601
